FAERS Safety Report 5614432-7 (Version None)
Quarter: 2008Q1

REPORT INFORMATION
  Report Type: 
  Country: None (occurrence: None)
  Receive Date: 20080130
  Receipt Date: 20080115
  Transmission Date: 20080703
  Serious: Yes (Other)
  Sender: FDA-Public Use
  Company Number: 07GB000968

PATIENT
  Sex: Male

DRUGS (3)
  1. LITHIUM CARBONATE [Suspect]
     Indication: DRUG USE FOR UNKNOWN INDICATION
     Dates: start: 20011101
  2. SEROXAT ^SMITHKLINE BEECHAM^ (PAROXETINE HYDROCHLORIDE) UNKNOWN [Concomitant]
  3. VENLAFAXINE HCL [Concomitant]

REACTIONS (8)
  - AGGRESSION [None]
  - COMPLETED SUICIDE [None]
  - DRUG WITHDRAWAL SYNDROME [None]
  - EATING DISORDER [None]
  - FEELING ABNORMAL [None]
  - INTENTIONAL SELF-INJURY [None]
  - NAUSEA [None]
  - STOMACH DISCOMFORT [None]
